FAERS Safety Report 17681895 (Version 3)
Quarter: 2020Q4

REPORT INFORMATION
  Report Type: Other
  Country: US (occurrence: US)
  Receive Date: 20200418
  Receipt Date: 20201102
  Transmission Date: 20210113
  Serious: Yes (Hospitalization)
  Sender: FDA-Public Use
  Company Number: US-ROCHE-2583611

PATIENT
  Age: 48 Year
  Sex: Female
  Weight: 83.08 kg

DRUGS (16)
  1. EPIPEN [Concomitant]
     Active Substance: EPINEPHRINE
     Indication: ANAPHYLACTIC SHOCK
     Dosage: 1 AS REQUIRED ONGOING YES
  2. TESSALON [Concomitant]
     Active Substance: BENZONATATE
     Dosage: THREE TIMES IN A DAY; ONGOING YES
     Route: 048
  3. PREDNISONE. [Concomitant]
     Active Substance: PREDNISONE
     Dates: start: 201912
  4. PREVACID [Concomitant]
     Active Substance: LANSOPRAZOLE
     Dosage: ONGOING YES
  5. XOLAIR [Suspect]
     Active Substance: OMALIZUMAB
     Indication: ASTHMA
     Route: 058
     Dates: start: 20200212
  6. XOPENEX [Concomitant]
     Active Substance: LEVALBUTEROL HYDROCHLORIDE
     Dosage: ONCE A DAY; ONGOING YES
     Route: 055
  7. ACCOLATE [Concomitant]
     Active Substance: ZAFIRLUKAST
     Route: 048
  8. CYCLOBENZAPRINE. [Concomitant]
     Active Substance: CYCLOBENZAPRINE
     Dosage: ONLY TAKES AT NIGHT OR WHEN NEEDED; ONGOING YES
     Route: 048
     Dates: start: 202001
  9. XYZAL [Concomitant]
     Active Substance: LEVOCETIRIZINE DIHYDROCHLORIDE
     Indication: HYPERSENSITIVITY
     Route: 048
  10. XOLAIR [Suspect]
     Active Substance: OMALIZUMAB
     Indication: BRONCHITIS CHRONIC
     Route: 058
     Dates: start: 202001, end: 202008
  11. ALBUTEROL SULFATE. [Concomitant]
     Active Substance: ALBUTEROL SULFATE
     Indication: ASTHMA
     Route: 055
  12. BREO ELLIPTA [Concomitant]
     Active Substance: FLUTICASONE FUROATE\VILANTEROL TRIFENATATE
     Dosage: ONCE IN A DAY; ONGOING YES
     Route: 055
  13. DICLOFENAC SODIUM. [Concomitant]
     Active Substance: DICLOFENAC SODIUM
     Route: 048
  14. MOTRIN [Concomitant]
     Active Substance: IBUPROFEN
  15. FLONASE [Concomitant]
     Active Substance: FLUTICASONE PROPIONATE
     Indication: HYPERSENSITIVITY
     Dosage: ONE SPRAY IN EACH NOSTRIL ONGOING YES
     Route: 045
  16. SPIRIVA [Concomitant]
     Active Substance: TIOTROPIUM BROMIDE MONOHYDRATE
     Dosage: TWO PUFFS EVERY MORNING ONGOING YES
     Route: 055

REACTIONS (5)
  - Paraesthesia [Unknown]
  - Hemiparaesthesia [Recovered/Resolved]
  - Urticaria [Unknown]
  - Hypoaesthesia [Recovered/Resolved]
  - Anxiety [Recovered/Resolved]

NARRATIVE: CASE EVENT DATE: 20200312
